FAERS Safety Report 25669023 (Version 1)
Quarter: 2025Q3

REPORT INFORMATION
  Report Type: Report from Study
  Country: US (occurrence: US)
  Receive Date: 20250812
  Receipt Date: 20250812
  Transmission Date: 20251020
  Serious: No
  Sender: SUNOVION
  Company Number: US-SUMITOMO PHARMA SWITZERLAND GMBH-2024SPA004057

PATIENT
  Age: 77 Year
  Sex: Male

DRUGS (4)
  1. ORGOVYX [Suspect]
     Active Substance: RELUGOLIX
     Indication: Prostate cancer
     Route: 048
  2. ORGOVYX [Suspect]
     Active Substance: RELUGOLIX
     Dosage: 120 MG, QD
     Route: 048
     Dates: start: 20241004
  3. ABIRATERONE [Suspect]
     Active Substance: ABIRATERONE
     Indication: Product used for unknown indication
  4. DEXAMETHASONE\NEOMYCIN\POLYMYXIN B SULFATE [Suspect]
     Active Substance: DEXAMETHASONE\NEOMYCIN\POLYMYXIN B SULFATE
     Indication: Product used for unknown indication

REACTIONS (17)
  - Renal pain [Unknown]
  - Inflammation [Not Recovered/Not Resolved]
  - Prostatomegaly [Unknown]
  - Bone disorder [Unknown]
  - Swelling [Unknown]
  - Malaise [Unknown]
  - Dysuria [Recovered/Resolved]
  - Seasonal allergy [Unknown]
  - Muscular weakness [Unknown]
  - Dyspepsia [Unknown]
  - Abdominal pain upper [Unknown]
  - Hot flush [Unknown]
  - Insomnia [Unknown]
  - Fatigue [Unknown]
  - Hyperhidrosis [Unknown]
  - Spinal pain [Unknown]
  - Drug ineffective [Unknown]
